FAERS Safety Report 18326156 (Version 1)
Quarter: 2020Q3

REPORT INFORMATION
  Report Type: Spontaneous
  Country: FI (occurrence: FI)
  Receive Date: 20200929
  Receipt Date: 20200929
  Transmission Date: 20201103
  Serious: Yes (Other)
  Sender: FDA-Public Use
  Company Number: FI-SA-2020SA266683

PATIENT

DRUGS (2)
  1. OMNIC OCA [Suspect]
     Active Substance: TAMSULOSIN HYDROCHLORIDE
     Indication: BENIGN PROSTATIC HYPERPLASIA
     Dosage: 0.4 MG, QD
     Route: 065
  2. OPTIPAR [Concomitant]

REACTIONS (4)
  - Headache [Unknown]
  - Arrhythmia [Unknown]
  - Labile blood pressure [Unknown]
  - Palpitations [Unknown]
